FAERS Safety Report 25527174 (Version 6)
Quarter: 2025Q4

REPORT INFORMATION
  Report Type: Report from Study
  Country: CA (occurrence: CA)
  Receive Date: 20250708
  Receipt Date: 20251014
  Transmission Date: 20260119
  Serious: Yes (Hospitalization)
  Sender: JOHNSON AND JOHNSON
  Company Number: CA-JNJFOC-20250529877

PATIENT
  Age: 71 Year
  Sex: Female
  Weight: 51.0 kg

DRUGS (5)
  1. TALVEY [Suspect]
     Active Substance: TALQUETAMAB-TGVS
     Indication: Plasma cell myeloma
     Dosage: ON DAY 5 AND WEEKLY THEREAFTER
     Route: 058
     Dates: start: 20250526
  2. TALVEY [Suspect]
     Active Substance: TALQUETAMAB-TGVS
     Dosage: ON DAY 1
     Route: 058
  3. TALVEY [Suspect]
     Active Substance: TALQUETAMAB-TGVS
     Dosage: ON DAY 3
     Route: 058
  4. TALVEY [Suspect]
     Active Substance: TALQUETAMAB-TGVS
     Dosage: ON DAY 5 AND WEEKLY THEREAFTER
     Route: 058
  5. LYRICA [Concomitant]
     Active Substance: PREGABALIN
     Indication: Product used for unknown indication

REACTIONS (6)
  - Fatigue [Recovering/Resolving]
  - Heart rate increased [Recovering/Resolving]
  - Inappropriate schedule of product administration [Unknown]
  - Ageusia [Recovering/Resolving]
  - Pain [Recovering/Resolving]
  - Hypoaesthesia [Recovering/Resolving]

NARRATIVE: CASE EVENT DATE: 20250620
